FAERS Safety Report 6439832-7 (Version None)
Quarter: 2009Q4

REPORT INFORMATION
  Report Type: 
  Country: None (occurrence: None)
  Receive Date: 20091112
  Receipt Date: 20091112
  Transmission Date: 20100525
  Serious: No
  Sender: FDA-Public Use
  Company Number: None

PATIENT
  Sex: Female

DRUGS (1)
  1. HUMIRA [Suspect]
     Indication: RHEUMATOID ARTHRITIS
     Dosage: 40 MG QOW SQ
     Route: 058
     Dates: start: 20090917

REACTIONS (2)
  - NO THERAPEUTIC RESPONSE [None]
  - ORAL FUNGAL INFECTION [None]
